FAERS Safety Report 22532526 (Version 2)
Quarter: 2025Q3

REPORT INFORMATION
  Report Type: Report from Study
  Country: US (occurrence: US)
  Receive Date: 20230607
  Receipt Date: 20250919
  Transmission Date: 20251021
  Serious: Yes (Hospitalization, Other)
  Sender: TAKEDA
  Company Number: US-TAKEDA-US201946020

PATIENT
  Age: 68 Year
  Sex: Female

DRUGS (53)
  1. TEDUGLUTIDE [Suspect]
     Active Substance: TEDUGLUTIDE
     Indication: Short-bowel syndrome
     Dosage: 2.9 MILLIGRAM, QD
     Dates: start: 20130812, end: 20130909
  2. TEDUGLUTIDE [Suspect]
     Active Substance: TEDUGLUTIDE
     Dosage: 1.5 MILLIGRAM, QD
     Dates: start: 20130920, end: 20131009
  3. TEDUGLUTIDE [Suspect]
     Active Substance: TEDUGLUTIDE
     Dosage: 2 MILLIGRAM, QD
     Dates: start: 20131009, end: 20131204
  4. TEDUGLUTIDE [Suspect]
     Active Substance: TEDUGLUTIDE
     Dosage: 2.9 MILLIGRAM, QD
     Dates: start: 20131204, end: 20140827
  5. TEDUGLUTIDE [Suspect]
     Active Substance: TEDUGLUTIDE
     Dosage: 1.5 MILLIGRAM, QD
     Dates: start: 20140910, end: 20141001
  6. TEDUGLUTIDE [Suspect]
     Active Substance: TEDUGLUTIDE
     Dosage: 0.75 MILLIGRAM, QD
     Dates: start: 20141001, end: 20150114
  7. TEDUGLUTIDE [Suspect]
     Active Substance: TEDUGLUTIDE
     Dosage: 1.5 MILLIGRAM, QD
     Dates: start: 20150114, end: 201510
  8. TEDUGLUTIDE [Suspect]
     Active Substance: TEDUGLUTIDE
     Dosage: 2.9 MILLIGRAM, QD
     Dates: start: 201510, end: 201511
  9. TEDUGLUTIDE [Suspect]
     Active Substance: TEDUGLUTIDE
     Dosage: 1.5 MILLIGRAM, QD
     Dates: start: 20161116, end: 20170322
  10. TEDUGLUTIDE [Suspect]
     Active Substance: TEDUGLUTIDE
     Dosage: 2.9 MILLIGRAM, 3/WEEK
     Dates: start: 20170322, end: 20190505
  11. TEDUGLUTIDE [Suspect]
     Active Substance: TEDUGLUTIDE
     Dosage: 1.25 MILLIGRAM, 4/WEEK
     Dates: start: 20190515, end: 20190828
  12. DILAUDID [Concomitant]
     Active Substance: HYDROMORPHONE HYDROCHLORIDE
     Indication: Pain
     Dosage: 0.2 GRAM, QOD
     Dates: start: 20190705, end: 20190705
  13. SPIRIVA [Concomitant]
     Active Substance: TIOTROPIUM BROMIDE MONOHYDRATE
     Indication: Hypoxia
     Dosage: 18 MICROGRAM, QD
     Dates: start: 20190514
  14. LIDOCAINE [Concomitant]
     Active Substance: LIDOCAINE
     Indication: Prophylaxis
     Dosage: UNK UNK, SINGLE
     Dates: start: 20190705, end: 20190705
  15. VITAMIN C [Concomitant]
     Active Substance: ASCORBIC ACID
     Indication: Mineral deficiency
     Dosage: 500 MILLIGRAM, QD
     Dates: start: 20190704
  16. KETOROLAC [Concomitant]
     Active Substance: KETOROLAC TROMETHAMINE
     Indication: Multiple allergies
     Dosage: UNK UNK, QD
     Dates: start: 20190703, end: 20190707
  17. LOVENOX [Concomitant]
     Active Substance: ENOXAPARIN SODIUM
     Indication: Prophylaxis
     Dates: start: 20190612, end: 20190613
  18. LOVENOX [Concomitant]
     Active Substance: ENOXAPARIN SODIUM
     Dates: start: 20190715, end: 20190724
  19. SIMETHICONE (DIMETHICONE) [Concomitant]
     Active Substance: DIMETHICONE
     Indication: Abdominal distension
     Dosage: 80 MILLIGRAM, QD
     Dates: start: 20190717, end: 20190717
  20. SIMETHICONE (DIMETHICONE) [Concomitant]
     Active Substance: DIMETHICONE
     Dosage: 80 MILLIGRAM, QID
     Dates: start: 20190724
  21. GADOBENATE DIMEGLUMINE [Concomitant]
     Active Substance: GADOBENATE DIMEGLUMINE
     Dosage: 14 MILLILITER, SINGLE
     Dates: start: 20190721, end: 20190721
  22. ACETAMINOPHEN [Concomitant]
     Active Substance: ACETAMINOPHEN
     Indication: Pain
     Dosage: 1000 MILLIGRAM, SINGLE
     Dates: start: 20190612, end: 20190612
  23. ACETAMINOPHEN [Concomitant]
     Active Substance: ACETAMINOPHEN
     Dates: start: 20190715, end: 20190724
  24. FENTANYL [Concomitant]
     Active Substance: FENTANYL
     Indication: Pain
     Dosage: 100 MICROGRAM, SINGLE
     Dates: start: 20190710, end: 20190710
  25. CYCLOBENZAPRINE HYDROCHLORIDE [Concomitant]
     Active Substance: CYCLOBENZAPRINE HYDROCHLORIDE
     Indication: Arthritis
     Dosage: 10 MILLIGRAM, TID
     Dates: start: 20190702, end: 20190706
  26. HYDROCORTISONE [Concomitant]
     Active Substance: HYDROCORTISONE
     Indication: Haemorrhoids
     Dosage: UNK UNK, BID
     Route: 061
     Dates: start: 20190717, end: 20190724
  27. DEXTROSE [Concomitant]
     Active Substance: DEXTROSE MONOHYDRATE
     Indication: Dehydration
     Dates: start: 20190612, end: 20190613
  28. SODIUM CHLORIDE [Concomitant]
     Active Substance: SODIUM CHLORIDE
     Indication: Dehydration
     Dates: start: 20190612, end: 20190613
  29. CYCLOBENZAPRINE HYDROCHLORIDE [Concomitant]
     Active Substance: CYCLOBENZAPRINE HYDROCHLORIDE
     Indication: Myalgia
  30. ALPRAZOLAM [Concomitant]
     Active Substance: ALPRAZOLAM
     Indication: Anxiety
     Dates: start: 20171101, end: 20200706
  31. AMILORIDE [Concomitant]
     Active Substance: AMILORIDE
     Indication: Electrolyte imbalance
     Dosage: 10 MILLIGRAM, QD
     Dates: start: 20130925
  32. ASCORBIC ACID [Concomitant]
     Active Substance: ASCORBIC ACID
     Indication: Hypovitaminosis
     Dosage: 500 MILLIGRAM, BID
     Dates: start: 20150715
  33. CALCIUM CARBONATE\CHOLECALCIFEROL [Concomitant]
     Active Substance: CALCIUM CARBONATE\CHOLECALCIFEROL
     Indication: Hypovitaminosis
     Dosage: 600 MILLIGRAM, BID
     Dates: start: 20140116
  34. Chlordiazepoxide hydrochloride;Clidinium [Concomitant]
     Indication: Malabsorption
     Dosage: 2.5 MILLIGRAM, QOD
     Dates: start: 20170322
  35. CHOLECALCIFEROL [Concomitant]
     Active Substance: CHOLECALCIFEROL
     Indication: Hypovitaminosis
     Dosage: 8000 INTERNATIONAL UNIT, BID
     Dates: start: 20180322, end: 20220212
  36. CYANOCOBALAMIN [Concomitant]
     Active Substance: CYANOCOBALAMIN
     Indication: Hypovitaminosis
     Dosage: 1000 MICROGRAM, QD
     Dates: start: 20160113, end: 20200706
  37. DICYCLOMINE [Concomitant]
     Active Substance: DICYCLOMINE HYDROCHLORIDE
     Indication: Malabsorption
     Dosage: 10 MILLIGRAM, TID
     Dates: start: 20170125
  38. GABAPENTIN [Concomitant]
     Active Substance: GABAPENTIN
     Indication: Neck pain
     Dosage: 300 MILLIGRAM, TID
     Dates: start: 20160621, end: 20200706
  39. GLUTAMINE [Concomitant]
     Active Substance: GLUTAMINE
     Indication: Malnutrition
     Dosage: 10 GRAM, BID
     Dates: start: 20130927
  40. LEVOTHYROXINE SODIUM [Concomitant]
     Active Substance: LEVOTHYROXINE SODIUM
     Indication: Hypothyroidism
     Dosage: 88 MICROGRAM, QD
     Dates: start: 20170125, end: 20200707
  41. LOPERAMIDE [Concomitant]
     Active Substance: LOPERAMIDE
     Indication: Malabsorption
     Dosage: 4 MILLIGRAM, QD
     Dates: start: 20131212
  42. METRONIDAZOLE [Concomitant]
     Active Substance: METRONIDAZOLE
     Indication: Malabsorption
     Dosage: 250 MILLIGRAM, TID
     Dates: start: 20100901
  43. OMEPRAZOLE [Concomitant]
     Active Substance: OMEPRAZOLE
     Indication: Malabsorption
     Dosage: 20 MILLIGRAM, BID
     Dates: start: 20100901
  44. PANCRELIPASE [Concomitant]
     Active Substance: PANCRELIPASE
     Indication: Malabsorption
     Dosage: 20000.00 INTERNATIONAL UNIT, TID
     Dates: start: 20160527
  45. PAROXETINE HYDROCHLORIDE [Concomitant]
     Active Substance: PAROXETINE HYDROCHLORIDE
     Indication: Temperature intolerance
     Dosage: 40 MILLIGRAM, QD
     Dates: start: 20140314
  46. PECTIN [Concomitant]
     Active Substance: PECTIN
     Indication: Malabsorption
     Dosage: 500 MILLIGRAM, TID
     Dates: start: 20100901
  47. PREGABALIN [Concomitant]
     Active Substance: PREGABALIN
     Indication: Neck pain
     Dosage: 75 MILLIGRAM, TID
     Dates: start: 20160116
  48. SELENIUM [Concomitant]
     Active Substance: SELENIUM
     Indication: Mineral deficiency
     Dosage: 200 MICROGRAM, QD
     Dates: start: 20130925
  49. CARAFATE [Concomitant]
     Active Substance: SUCRALFATE
     Indication: Malabsorption
     Dosage: 1 GRAM, TID
     Dates: start: 20100901
  50. THIAMINE HYDROCHLORIDE [Concomitant]
     Active Substance: THIAMINE HYDROCHLORIDE
     Indication: Hypovitaminosis
     Dosage: 50 MILLIGRAM, QD
     Dates: start: 20130925
  51. TOLTERODINE TARTRATE [Concomitant]
     Active Substance: TOLTERODINE TARTRATE
     Indication: Electrolyte imbalance
     Dosage: 4 MILLIGRAM, QD
     Dates: start: 20100901
  52. TRAZODONE HCL [Concomitant]
     Active Substance: TRAZODONE HYDROCHLORIDE
     Indication: Neck pain
     Dosage: 150 MILLIGRAM, QD
     Dates: start: 20151104, end: 2020
  53. ZINC SULFATE [Concomitant]
     Active Substance: ZINC SULFATE
     Indication: Mineral deficiency
     Dosage: 220 MILLIGRAM, BID
     Dates: start: 20130925

REACTIONS (4)
  - Hypokalaemia [Recovered/Resolved]
  - Abdominal pain [Recovered/Resolved]
  - Hypomagnesaemia [Recovered/Resolved]
  - Nausea [Recovered/Resolved]

NARRATIVE: CASE EVENT DATE: 20190608
